FAERS Safety Report 5906244-1 (Version None)
Quarter: 2008Q4

REPORT INFORMATION
  Report Type: 
  Country: None (occurrence: None)
  Receive Date: 20081002
  Receipt Date: 20080922
  Transmission Date: 20090506
  Serious: Yes (Disabling, Other)
  Sender: FDA-Public Use
  Company Number: AU-PFIZER INC-2008070072

PATIENT
  Age: 49 Year
  Sex: Female
  Weight: 39 kg

DRUGS (2)
  1. ZELDOX (CAPSULES) [Suspect]
     Route: 048
     Dates: start: 20080624
  2. ZOLOFT [Concomitant]
     Dosage: DAILY DOSE:50MG
     Route: 048
     Dates: start: 20080823

REACTIONS (2)
  - BLOOD PROLACTIN INCREASED [None]
  - MENSTRUAL DISORDER [None]
